FAERS Safety Report 23346512 (Version 1)
Quarter: 2023Q4

REPORT INFORMATION
  Report Type: Spontaneous
  Country: GB (occurrence: GB)
  Receive Date: 20231228
  Receipt Date: 20231228
  Transmission Date: 20240109
  Serious: Yes (Other)
  Sender: FDA-Public Use
  Company Number: GB-SUN PHARMACEUTICAL INDUSTRIES LTD-2023RR-425088

PATIENT
  Age: 76 Year
  Sex: Female
  Weight: 89 kg

DRUGS (5)
  1. ATORVASTATIN [Suspect]
     Active Substance: ATORVASTATIN
     Indication: Ill-defined disorder
     Dosage: UNK
     Route: 065
     Dates: start: 20230601
  2. FEXOFENADINE [Concomitant]
     Active Substance: FEXOFENADINE HYDROCHLORIDE
     Indication: Ill-defined disorder
     Dosage: ONE TO BE TAKEN DAILY
     Route: 065
     Dates: start: 20221003
  3. LETROZOLE [Concomitant]
     Active Substance: LETROZOLE
     Indication: Ill-defined disorder
     Dosage: 1 DAILY
     Route: 065
     Dates: start: 20221003
  4. OMEPRAZOLE [Concomitant]
     Active Substance: OMEPRAZOLE
     Indication: Ill-defined disorder
     Dosage: 1 ONCE DAILY AS REQUIRED
     Route: 065
     Dates: start: 20221003
  5. PENICILLIN V [Concomitant]
     Active Substance: PENICILLIN V
     Indication: Ill-defined disorder
     Dosage: ONE TO BE TAKEN DAILY
     Route: 065
     Dates: start: 20221003

REACTIONS (1)
  - Adverse drug reaction [Recovered/Resolved]

NARRATIVE: CASE EVENT DATE: 20230602
